FAERS Safety Report 6679904-5 (Version None)
Quarter: 2010Q2

REPORT INFORMATION
  Report Type: 
  Country: None (occurrence: None)
  Receive Date: 20100409
  Receipt Date: 20100325
  Transmission Date: 20101027
  Serious: Yes (Hospitalization)
  Sender: FDA-Public Use
  Company Number: KV200800451

PATIENT
  Age: 63 Year
  Sex: Male
  Weight: 77.6 kg

DRUGS (21)
  1. PROPAFENONE HCL [Suspect]
     Indication: ATRIAL FIBRILLATION
     Dosage: 225 MG, QD, ORAL
     Route: 048
     Dates: start: 20060801, end: 20080901
  2. DILTIAZEM ER (DILTIAZEM HYDROCHLORIDE) [Concomitant]
  3. DIGOXIN [Concomitant]
  4. MIRAPEX [Concomitant]
  5. CRESTOR [Concomitant]
  6. NITROQUICK (GLYCERYL TRINITRATE) [Concomitant]
  7. RANITIDINE [Concomitant]
  8. ATENOLOL [Concomitant]
  9. SULFACETAMIDE SODIUM (SULFAETAMIDE SODIUM) [Concomitant]
  10. PLAVIX [Concomitant]
  11. NAPROXEN [Concomitant]
  12. OMEPRAZOLE [Concomitant]
  13. CLONAZEPAM [Concomitant]
  14. ASPIRIN [Concomitant]
  15. LIPITOR [Concomitant]
  16. TRICOR /00499301/ (FENOFIBRATE) [Concomitant]
  17. BUPROPION HCL [Concomitant]
  18. ZOFRAN /00955301/ (ONDANSETRON) [Concomitant]
  19. TYLENOL /00020001/ (PARACETAMOL) [Concomitant]
  20. MULTIVITAMIN /00831701/ (VITAMINS NOS) [Concomitant]
  21. IMDUR [Concomitant]

REACTIONS (20)
  - ANGINA PECTORIS [None]
  - ARTERIOSCLEROSIS CORONARY ARTERY [None]
  - ASTHENIA [None]
  - BRONCHITIS [None]
  - BRONCHOSPASM [None]
  - CARDIAC FLUTTER [None]
  - CHEST PAIN [None]
  - DRUG INEFFECTIVE [None]
  - DYSPNOEA [None]
  - HEADACHE [None]
  - HYPERHIDROSIS [None]
  - HYPERLIPIDAEMIA [None]
  - HYPOAESTHESIA [None]
  - JOINT SWELLING [None]
  - NASAL CONGESTION [None]
  - PALPITATIONS [None]
  - PRODUCT QUALITY ISSUE [None]
  - PRODUCTIVE COUGH [None]
  - TACHYARRHYTHMIA [None]
  - TOBACCO ABUSE [None]
